FAERS Safety Report 8164008-5 (Version None)
Quarter: 2012Q1

REPORT INFORMATION
  Report Type: 
  Country: None (occurrence: None)
  Receive Date: 20120224
  Receipt Date: 20120223
  Transmission Date: 20120608
  Serious: Yes (Hospitalization)
  Sender: FDA-Public Use
  Company Number: CHPA2012US003475

PATIENT
  Age: 85 Year
  Sex: Female

DRUGS (3)
  1. INDAPAMIDE [Concomitant]
     Indication: DIURETIC THERAPY
     Route: 048
  2. ACETAMINOPHEN [Concomitant]
     Indication: HEADACHE
     Route: 048
  3. VOLTAREN [Suspect]
     Indication: ARTHRALGIA
     Dosage: ONCE OR TWICE DAILY FOR PAIN, OFF AND ON
     Route: 061
     Dates: start: 20120120, end: 20120221

REACTIONS (9)
  - RASH PRURITIC [None]
  - WALKING AID USER [None]
  - MEMORY IMPAIRMENT [None]
  - OFF LABEL USE [None]
  - ASTHENIA [None]
  - DRUG ADMINISTERED AT INAPPROPRIATE SITE [None]
  - HEART RATE DECREASED [None]
  - DIZZINESS [None]
  - RASH PAPULAR [None]
